FAERS Safety Report 20651090 (Version 2)
Quarter: 2022Q3

REPORT INFORMATION
  Report Type: Report from Study
  Country: US (occurrence: US)
  Receive Date: 20220329
  Receipt Date: 20220722
  Transmission Date: 20221027
  Serious: No
  Sender: FDA-Public Use
  Company Number: US-BRISTOL-MYERS SQUIBB COMPANY-2022-011178

PATIENT
  Age: 79 Year
  Sex: Female
  Weight: 51.2 kg

DRUGS (2)
  1. REVLIMID [Suspect]
     Active Substance: LENALIDOMIDE
     Indication: Diffuse large B-cell lymphoma
     Route: 065
  2. REVLIMID [Suspect]
     Active Substance: LENALIDOMIDE
     Indication: Lymphoma
     Dosage: QD, 21D OF 28D CYCLE
     Route: 048
     Dates: start: 20220224

REACTIONS (4)
  - Dizziness [Unknown]
  - Asthenia [Unknown]
  - Asthenia [Unknown]
  - Intentional product use issue [Unknown]

NARRATIVE: CASE EVENT DATE: 20220101
